FAERS Safety Report 21392331 (Version 1)
Quarter: 2022Q3

REPORT INFORMATION
  Report Type: Spontaneous
  Country: US (occurrence: None)
  Receive Date: 20220928
  Receipt Date: 20220928
  Transmission Date: 20221027
  Serious: Yes (Other)
  Sender: FDA-Public Use
  Company Number: None

PATIENT
  Age: 51 Year
  Sex: Female
  Weight: 86.4 kg

DRUGS (2)
  1. DUPIXENT [Suspect]
     Active Substance: DUPILUMAB
     Indication: Eosinophilic oesophagitis
     Dosage: 2ML WEEKLY INTRAMUSCULAR
     Route: 030
  2. omeprazole 40mg BID [Concomitant]
     Dates: start: 20220713

REACTIONS (2)
  - Rash pruritic [None]
  - Arthralgia [None]

NARRATIVE: CASE EVENT DATE: 20220926
